FAERS Safety Report 19754541 (Version 1)
Quarter: 2021Q3

REPORT INFORMATION
  Report Type: Spontaneous
  Country: US (occurrence: US)
  Receive Date: 20210825
  Receipt Date: 20210825
  Transmission Date: 20211014
  Serious: Yes (Hospitalization)
  Sender: FDA-Public Use
  Company Number: None

PATIENT
  Age: 66 Year
  Sex: Male
  Weight: 84.8 kg

DRUGS (3)
  1. PREDNISONE. [Suspect]
     Active Substance: PREDNISONE
     Dates: start: 20210319, end: 20210706
  2. CABAZITAXEL [Suspect]
     Active Substance: CABAZITAXEL
     Dates: start: 20210319, end: 20210616
  3. ABIRATERONE ACETATE. [Suspect]
     Active Substance: ABIRATERONE ACETATE
     Dates: start: 20210319, end: 20210707

REACTIONS (10)
  - Blood pressure decreased [None]
  - Periureteral collection [None]
  - Perinephric oedema [None]
  - Dysuria [None]
  - Hydroureter [None]
  - Bladder hypertrophy [None]
  - Urine analysis abnormal [None]
  - Hydronephrosis [None]
  - Urinary tract infection [None]
  - Heart rate increased [None]

NARRATIVE: CASE EVENT DATE: 20210707
